FAERS Safety Report 23695893 (Version 2)
Quarter: 2024Q2

REPORT INFORMATION
  Report Type: Spontaneous
  Country: GB (occurrence: GB)
  Receive Date: 20240402
  Receipt Date: 20240509
  Transmission Date: 20240716
  Serious: Yes (Other)
  Sender: FDA-Public Use
  Company Number: GB-AUROBINDO-AUR-APL-2024-014346

PATIENT
  Age: 50 Decade
  Sex: Male

DRUGS (5)
  1. TERBINAFINE [Suspect]
     Active Substance: TERBINAFINE
     Indication: Chromoblastomycosis
     Dosage: 250 MILLIGRAM, ONCE A DAY
     Route: 048
  2. TERBINAFINE [Suspect]
     Active Substance: TERBINAFINE
     Indication: Nodular rash
     Dosage: UNK
     Route: 061
  3. VORICONAZOLE [Suspect]
     Active Substance: VORICONAZOLE
     Indication: Chromoblastomycosis
     Dosage: UNK
     Route: 048
  4. VORICONAZOLE [Suspect]
     Active Substance: VORICONAZOLE
     Indication: Nodular rash
  5. ITRACONAZOLE [Suspect]
     Active Substance: ITRACONAZOLE
     Indication: Nodular rash
     Dosage: 400 MILLIGRAM, ONCE A DAY
     Route: 048

REACTIONS (1)
  - Drug ineffective [Unknown]
